FAERS Safety Report 13797657 (Version 1)
Quarter: 2017Q3

REPORT INFORMATION
  Report Type: Spontaneous
  Country: US (occurrence: US)
  Receive Date: 20170726
  Receipt Date: 20170726
  Transmission Date: 20171127
  Serious: Yes (Other)
  Sender: FDA-Public Use
  Company Number: None

PATIENT
  Age: 48 Year
  Sex: Female

DRUGS (1)
  1. TALTZ [Suspect]
     Active Substance: IXEKIZUMAB
     Indication: PSORIASIS
     Dosage: 80MG/ML, #2
     Route: 058
     Dates: start: 20170711, end: 20170711

REACTIONS (5)
  - Influenza like illness [None]
  - Injection site discomfort [None]
  - Injection site swelling [None]
  - Skin discolouration [None]
  - Injection site erythema [None]

NARRATIVE: CASE EVENT DATE: 20170711
